FAERS Safety Report 8870119 (Version 1)
Quarter: 2012Q4

REPORT INFORMATION
  Report Type: Spontaneous
  Country: US (occurrence: None)
  Receive Date: 20121024
  Receipt Date: 20121024
  Transmission Date: 20130627
  Serious: Yes (Other)
  Sender: FDA-Public Use
  Company Number: ACO_32548_2012

PATIENT
  Sex: Female

DRUGS (2)
  1. AMPYRA [Suspect]
     Indication: DRUG USE FOR UNKNOWN INDICATION
     Dates: start: 20100506
  2. COPAXONE [Suspect]
     Route: 058

REACTIONS (5)
  - Respiratory arrest [None]
  - Foaming at mouth [None]
  - Feeling abnormal [None]
  - Hyperventilation [None]
  - Feeling cold [None]
